FAERS Safety Report 10578675 (Version 1)
Quarter: 2014Q4

REPORT INFORMATION
  Report Type: Spontaneous
  Country: US (occurrence: US)
  Receive Date: 20141112
  Receipt Date: 20141112
  Transmission Date: 20150529
  Serious: Yes (Other)
  Sender: FDA-Public Use
  Company Number: US-CIPLA LTD.-2014US01719

PATIENT

DRUGS (5)
  1. FOLINIC ACID [Concomitant]
     Active Substance: LEUCOVORIN
     Indication: NEOPLASM MALIGNANT
  2. CARBOPLATIN. [Suspect]
     Active Substance: CARBOPLATIN
     Indication: NEOPLASM MALIGNANT
     Dosage: 6 AUC, ON DAYS 1 AND 22
     Route: 042
  3. DEXAMETHASONE. [Concomitant]
     Active Substance: DEXAMETHASONE
     Indication: NEOPLASM MALIGNANT
     Dosage: 4 MG, BID
     Route: 048
  4. VITAMIN B12 [Concomitant]
     Active Substance: CYANOCOBALAMIN
     Indication: NEOPLASM MALIGNANT
     Dosage: 7 TO 14 DAYS BEFORE THEIR FIRST DOSE OF PREMETREXED
  5. PEMETREXED [Suspect]
     Active Substance: PEMETREXED
     Indication: NEOPLASM MALIGNANT
     Dosage: 500 MG/M2, ON DAYS 1 AND 22
     Route: 042

REACTIONS (1)
  - Thrombosis [Unknown]
